FAERS Safety Report 7884158-8 (Version None)
Quarter: 2011Q4

REPORT INFORMATION
  Report Type: 
  Country: None (occurrence: None)
  Receive Date: 20111102
  Receipt Date: 20111101
  Transmission Date: 20120403
  Serious: Yes (Hospitalization)
  Sender: FDA-Public Use
  Company Number: GR-GLAXOSMITHKLINE-B0734431A

PATIENT
  Age: 90 Year
  Sex: Female

DRUGS (2)
  1. TIMENTIN [Suspect]
     Route: 065
  2. NETILMICIN SULFATE [Suspect]
     Route: 065

REACTIONS (15)
  - BLOOD IMMUNOGLOBULIN E INCREASED [None]
  - OTITIS EXTERNA [None]
  - OEDEMA PERIPHERAL [None]
  - VIITH NERVE PARALYSIS [None]
  - HYPOACUSIS [None]
  - ATRIAL FIBRILLATION [None]
  - DYSPNOEA [None]
  - CONJUNCTIVAL HYPERAEMIA [None]
  - RALES [None]
  - RENAL FAILURE ACUTE [None]
  - ERYTHEMA [None]
  - HERPES VIRUS INFECTION [None]
  - CARDIAC MURMUR [None]
  - C-REACTIVE PROTEIN INCREASED [None]
  - ANGIOEDEMA [None]
